FAERS Safety Report 5839983-1 (Version None)
Quarter: 2008Q3

REPORT INFORMATION
  Report Type: 
  Country: None (occurrence: None)
  Receive Date: 20080807
  Receipt Date: 20080807
  Transmission Date: 20090109
  Serious: Yes (Disabling)
  Sender: FDA-Public Use
  Company Number: None

PATIENT
  Age: 57 Year
  Sex: Female
  Weight: 102.0593 kg

DRUGS (10)
  1. LEVAQUIN [Suspect]
     Indication: INFECTION
     Dosage: 500MG 1QD ORAL
     Route: 048
     Dates: start: 20080325, end: 20080404
  2. PREDNISONE TAB [Concomitant]
  3. SEREVENT [Concomitant]
  4. PULMICORT-100 [Concomitant]
  5. FLUTICASOME [Concomitant]
  6. SINGULAIR [Concomitant]
  7. CLARITIN [Concomitant]
  8. LEVOTHYROXINE SODIUM [Concomitant]
  9. XOLAIR INJ. [Concomitant]
  10. B12 INJ. [Concomitant]

REACTIONS (2)
  - PALPITATIONS [None]
  - TENDON RUPTURE [None]
